FAERS Safety Report 6451284-X (Version None)
Quarter: 2009Q4

REPORT INFORMATION
  Report Type: 
  Country: None (occurrence: None)
  Receive Date: 20091123
  Receipt Date: 20091113
  Transmission Date: 20100525
  Serious: Yes (Life-Threatening, Other)
  Sender: FDA-Public Use
  Company Number: DE-SANOFI-AVENTIS-200912401DE

PATIENT
  Age: 78 Year
  Sex: Male

DRUGS (3)
  1. DOCETAXEL [Suspect]
     Indication: PROSTATE CANCER
     Dosage: DOSE AS USED: NOT REPORTED
     Route: 041
     Dates: start: 20090917, end: 20090917
  2. CASODEX [Concomitant]
     Indication: PROSTATE CANCER
     Route: 048
  3. PANTOZOL [Concomitant]
     Indication: DRUG USE FOR UNKNOWN INDICATION
     Route: 048

REACTIONS (3)
  - FACIAL PALSY [None]
  - LOSS OF CONSCIOUSNESS [None]
  - TRANSIENT ISCHAEMIC ATTACK [None]
